FAERS Safety Report 5874014-9 (Version None)
Quarter: 2008Q3

REPORT INFORMATION
  Report Type: 
  Country: None (occurrence: None)
  Receive Date: 20080908
  Receipt Date: 20080826
  Transmission Date: 20090109
  Serious: Yes (Other)
  Sender: FDA-Public Use
  Company Number: US-ELI_LILLY_AND_COMPANY-US200807002946

PATIENT
  Sex: Female
  Weight: 86.621 kg

DRUGS (8)
  1. CYMBALTA [Suspect]
     Indication: FIBROMYALGIA
     Dosage: 30 MG, UNK
     Route: 048
     Dates: start: 20080701, end: 20080710
  2. OXYCODONE HCL [Concomitant]
     Indication: RETINAL VASCULITIS
     Dosage: 5 MG, UNK
     Dates: start: 20061116
  3. FLEXERIL [Concomitant]
     Indication: RETINAL VASCULITIS
     Dosage: 10 MG, UNK
     Dates: start: 20080117
  4. IMITREX [Concomitant]
     Indication: MIGRAINE
     Dosage: 100 MG, UNK
     Dates: start: 20080321
  5. AMBIEN [Concomitant]
     Indication: SLEEP DISORDER
     Dosage: 10 MG, UNK
     Dates: start: 20080420
  6. PREMARIN [Concomitant]
     Indication: PREMENSTRUAL SYNDROME
     Dosage: 0.625 MG, UNK
     Dates: start: 20080522
  7. ATIVAN [Concomitant]
     Indication: RETINAL VASCULITIS
     Dosage: 1 MG, UNK
  8. OXYMORPHONE [Concomitant]
     Indication: RETINAL VASCULITIS

REACTIONS (1)
  - RASH MACULAR [None]
